FAERS Safety Report 21488810 (Version 1)
Quarter: 2022Q4

REPORT INFORMATION
  Report Type: Spontaneous
  Country: CN (occurrence: None)
  Receive Date: 20221021
  Receipt Date: 20221021
  Transmission Date: 20230112
  Serious: Yes (Hospitalization)
  Sender: FDA-Public Use
  Company Number: 2022A349414

PATIENT
  Age: 20777 Day
  Sex: Male
  Weight: 60 kg

DRUGS (5)
  1. TICAGRELOR [Suspect]
     Active Substance: TICAGRELOR
     Indication: Acute myocardial infarction
     Route: 048
     Dates: start: 20220830, end: 20220907
  2. ASPIRIN [Concomitant]
     Active Substance: ASPIRIN
     Indication: Acute myocardial infarction
     Route: 048
     Dates: start: 20220830, end: 20220910
  3. ROSUVASTATIN [Concomitant]
     Active Substance: ROSUVASTATIN
     Indication: Acute myocardial infarction
     Route: 048
  4. CLOPIDOGREL BISULFATE [Concomitant]
     Active Substance: CLOPIDOGREL BISULFATE
     Route: 048
  5. NOREPINEPHRINE HYDROCHLORIDE, (+/-)- [Concomitant]
     Active Substance: NOREPINEPHRINE HYDROCHLORIDE, (+/-)-

REACTIONS (2)
  - Hypotension [Recovered/Resolved]
  - Angina pectoris [Unknown]

NARRATIVE: CASE EVENT DATE: 20220902
